FAERS Safety Report 6604599-6 (Version None)
Quarter: 2010Q1

REPORT INFORMATION
  Report Type: 
  Country: None (occurrence: None)
  Receive Date: 20100226
  Receipt Date: 20091217
  Transmission Date: 20100710
  Serious: No
  Sender: FDA-Public Use
  Company Number: A0835629A

PATIENT
  Age: 54 Year
  Sex: Male

DRUGS (3)
  1. LAMICTAL CD [Suspect]
     Indication: BIPOLAR DISORDER
     Dosage: 150MG TWICE PER DAY
     Route: 048
     Dates: start: 20040101
  2. NORVASC [Concomitant]
  3. GLUCOTROL [Concomitant]

REACTIONS (3)
  - DRUG ADMINISTRATION ERROR [None]
  - HYPOAESTHESIA [None]
  - MENTAL IMPAIRMENT [None]
